FAERS Safety Report 22525444 (Version 1)
Quarter: 2023Q2

REPORT INFORMATION
  Report Type: Spontaneous
  Country: CA (occurrence: CA)
  Receive Date: 20230606
  Receipt Date: 20230606
  Transmission Date: 20230721
  Serious: Yes (Life-Threatening, Hospitalization, Other)
  Sender: FDA-Public Use
  Company Number: CA-SUN PHARMACEUTICAL INDUSTRIES LTD-2023R1-392744

PATIENT
  Sex: Male

DRUGS (10)
  1. ACETAMINOPHEN [Suspect]
     Active Substance: ACETAMINOPHEN
     Indication: Pain
     Dosage: 3900 MILLIGRAM, DAILY
     Route: 065
  2. OLANZAPINE [Suspect]
     Active Substance: OLANZAPINE
     Indication: Pain
     Dosage: 2.5 MILLIGRAM, DAILY
     Route: 065
  3. DICLOFENAC SODIUM [Suspect]
     Active Substance: DICLOFENAC SODIUM
     Indication: Pain
     Dosage: UNK
     Route: 065
  4. DILAUDID [Suspect]
     Active Substance: HYDROMORPHONE HYDROCHLORIDE
     Indication: Pain
     Dosage: 30 MILLIGRAM, DAILY
     Route: 065
  5. IBUPROFEN [Suspect]
     Active Substance: IBUPROFEN
     Indication: Acute respiratory failure
     Dosage: 1600 MILLIGRAM, DAILY
     Route: 065
  6. GABAPENTIN [Suspect]
     Active Substance: GABAPENTIN
     Indication: Acute respiratory failure
     Dosage: 3600 MILLIGRAM, DAILY
     Route: 065
  7. FENTANYL [Suspect]
     Active Substance: FENTANYL
     Indication: Pain
     Dosage: 37.5 MCG/H
     Route: 065
  8. KETAMINE [Suspect]
     Active Substance: KETAMINE
     Indication: Product used for unknown indication
     Dosage: 40 MILLIGRAM, DAILY
  9. LIDOCAINE [Suspect]
     Active Substance: LIDOCAINE
     Indication: Pain
     Dosage: 3.84MG/H
     Route: 065
  10. NABILONE [Suspect]
     Active Substance: NABILONE
     Indication: Pain
     Dosage: 6 MILLIGRAM, DAILY
     Route: 065

REACTIONS (1)
  - Therapy non-responder [Unknown]
